FAERS Safety Report 12908093 (Version 1)
Quarter: 2016Q4

REPORT INFORMATION
  Report Type: Spontaneous
  Country: AU (occurrence: AU)
  Receive Date: 20161103
  Receipt Date: 20161103
  Transmission Date: 20170207
  Serious: Yes (Hospitalization, Other)
  Sender: FDA-Public Use
  Company Number: AU-MYLANLABS-2016M1046797

PATIENT

DRUGS (1)
  1. IBUPROFEN. [Suspect]
     Active Substance: IBUPROFEN
     Indication: PRODUCT USED FOR UNKNOWN INDICATION
     Route: 065

REACTIONS (7)
  - Drug abuse [Recovering/Resolving]
  - Intestinal obstruction [Recovering/Resolving]
  - Malnutrition [Unknown]
  - Hypoalbuminaemia [Unknown]
  - Iron deficiency anaemia [Unknown]
  - Oedema peripheral [Unknown]
  - Gastrointestinal disorder [Recovering/Resolving]
